FAERS Safety Report 6151672-5 (Version None)
Quarter: 2009Q2

REPORT INFORMATION
  Report Type: 
  Country: None (occurrence: None)
  Receive Date: 20090410
  Receipt Date: 20090330
  Transmission Date: 20091009
  Serious: Yes (Other)
  Sender: FDA-Public Use
  Company Number: US-PFIZER INC-2009195027

PATIENT
  Sex: Female
  Weight: 63.502 kg

DRUGS (10)
  1. XANAX [Suspect]
     Dates: start: 19960101
  2. CHANTIX [Suspect]
     Indication: SMOKING CESSATION THERAPY
     Route: 048
     Dates: start: 20071201
  3. OXYCODONE [Concomitant]
     Dosage: UNK
  4. TRIAZOLAM [Concomitant]
     Dosage: UNK
  5. PREGABALIN [Concomitant]
     Dosage: UNK
  6. ESTRADIOL [Concomitant]
     Dosage: UNK
  7. OXYCODONE [Concomitant]
     Dosage: UNK
  8. ALL OTHER THERAPEUTIC PRODUCTS [Concomitant]
     Dosage: UNK
  9. ALL OTHER THERAPETUC PRODUCTS [Concomitant]
     Dosage: UNK
  10. ESOMEPRAZOLE [Concomitant]
     Dosage: UNK

REACTIONS (2)
  - AGGRESSION [None]
  - THINKING ABNORMAL [None]
